FAERS Safety Report 10222159 (Version 1)
Quarter: 2014Q2

REPORT INFORMATION
  Report Type: Spontaneous
  Country: US (occurrence: US)
  Receive Date: 20140606
  Receipt Date: 20140606
  Transmission Date: 20141212
  Serious: Yes (Hospitalization)
  Sender: FDA-Public Use
  Company Number: US-MALLINCKRODT-T201402337

PATIENT
  Age: 62 Year
  Sex: Male

DRUGS (17)
  1. TRAMADOL [Suspect]
     Indication: PAIN
     Dosage: 50 MG, Q6H
     Route: 048
  2. TRAMADOL [Suspect]
     Dosage: 100 MG, Q6H PRN
     Route: 048
  3. ROXICODONE [Suspect]
     Indication: PAIN
     Dosage: 5 - 10 MG Q4H, PRN
     Route: 048
  4. TRAZODONE [Suspect]
     Indication: INSOMNIA
     Dosage: 25 MG, QHS, PRN
     Route: 048
  5. BUPROPION [Suspect]
     Indication: DEPRESSION
     Dosage: 150 MG, BID
     Route: 048
  6. LORAZEPAM [Concomitant]
     Indication: DRUG WITHDRAWAL SYNDROME
     Dosage: 1 MG, X 3 AND 2 MG X 1
     Route: 048
  7. LORAZEPAM [Concomitant]
     Dosage: 2 MG, Q2H, PRN
     Route: 048
  8. LORAZEPAM [Concomitant]
     Dosage: 2 MG, TID AND PRN
     Route: 042
  9. HEPARIN [Concomitant]
     Indication: PRODUCT USED FOR UNKNOWN INDICATION
     Dosage: 5000 U, TID
     Route: 030
  10. RANITIDINE [Concomitant]
     Indication: PRODUCT USED FOR UNKNOWN INDICATION
     Dosage: 150 MG, BID
     Route: 048
  11. DOCUSATE [Concomitant]
     Indication: PRODUCT USED FOR UNKNOWN INDICATION
     Dosage: 100 MG, BID
     Route: 048
  12. ACETAMINOPHEN [Concomitant]
     Indication: PAIN
     Dosage: 500 MG, Q8H, PRN
     Route: 048
  13. POLYETHYLENE GLYCOL 3350 [Concomitant]
     Indication: CONSTIPATION
     Dosage: 17 G DISSOLVED IN 4 OZ. WATER, Q4H, PRN
     Route: 048
  14. CALCIUM + VITAMIN D [Concomitant]
     Dosage: 125 U, QD
     Route: 048
  15. THIAMINE [Concomitant]
     Indication: PRODUCT USED FOR UNKNOWN INDICATION
     Dosage: 100 MG, QD
     Route: 048
  16. FOLATE [Concomitant]
     Indication: PRODUCT USED FOR UNKNOWN INDICATION
     Dosage: 1 MG, QD
     Route: 048
  17. MULTIVITAMIN [Concomitant]
     Indication: PRODUCT USED FOR UNKNOWN INDICATION
     Dosage: ONE TABLET DAILY
     Route: 048

REACTIONS (1)
  - Serotonin syndrome [Recovering/Resolving]
